FAERS Safety Report 6030586-5 (Version None)
Quarter: 2009Q1

REPORT INFORMATION
  Report Type: 
  Country: None (occurrence: None)
  Receive Date: 20090107
  Receipt Date: 20090105
  Transmission Date: 20090719
  Serious: Yes (Other)
  Sender: FDA-Public Use
  Company Number: US-AMGEN-QUU326866

PATIENT
  Sex: Female

DRUGS (4)
  1. ARANESP [Suspect]
     Indication: ANAEMIA OF MALIGNANT DISEASE
  2. TAXOL [Concomitant]
  3. CARBOPLATIN [Concomitant]
  4. RADIATION THERAPY [Concomitant]

REACTIONS (5)
  - CHEST PAIN [None]
  - DYSPNOEA [None]
  - EYE SWELLING [None]
  - HAEMOGLOBIN ABNORMAL [None]
  - RASH [None]
